FAERS Safety Report 22993554 (Version 2)
Quarter: 2023Q4

REPORT INFORMATION
  Report Type: Spontaneous
  Country: JP (occurrence: JP)
  Receive Date: 20230927
  Receipt Date: 20231102
  Transmission Date: 20240109
  Serious: Yes (Other)
  Sender: FDA-Public Use
  Company Number: JP-CHUGAI-2023034321AA

PATIENT
  Age: 47 Year
  Sex: Female

DRUGS (2)
  1. TECENTRIQ [Suspect]
     Active Substance: ATEZOLIZUMAB
     Indication: Triple negative breast cancer
     Dosage: 2 TIMES
     Route: 065
     Dates: start: 20230515, end: 20230612
  2. PACLITAXEL [Concomitant]
     Active Substance: PACLITAXEL
     Indication: Triple negative breast cancer
     Dosage: UNK

REACTIONS (1)
  - Autoimmune hepatitis [Recovered/Resolved]

NARRATIVE: CASE EVENT DATE: 20230515
